FAERS Safety Report 8052800-7 (Version None)
Quarter: 2012Q1

REPORT INFORMATION
  Report Type: 
  Country: None (occurrence: None)
  Receive Date: 20120118
  Receipt Date: 20120112
  Transmission Date: 20120608
  Serious: Yes (Other)
  Sender: FDA-Public Use
  Company Number: PHEH2012US001227

PATIENT
  Age: 79 Year
  Sex: Female

DRUGS (7)
  1. CALCIUM [Concomitant]
     Dosage: ONE PER DAY
  2. DIOVAN [Suspect]
     Dosage: 320 MG, QD
     Dates: start: 20070101
  3. MAGNESIUM CITRATE [Concomitant]
  4. VITAMIN D [Concomitant]
     Dosage: ONCE IN A WHILE
  5. CITRUCEL [Concomitant]
     Indication: MUSCLE SPASMS
     Dosage: 3 PER DAY
  6. VITAMIN B NOS [Concomitant]
     Dosage: ONCE IN A WHILE
  7. COQ10 [Concomitant]
     Indication: MUSCLE SPASMS

REACTIONS (4)
  - MUSCULOSKELETAL PAIN [None]
  - ROAD TRAFFIC ACCIDENT [None]
  - MUSCLE SPASMS [None]
  - MEMORY IMPAIRMENT [None]
